FAERS Safety Report 6217162-6 (Version None)
Quarter: 2009Q2

REPORT INFORMATION
  Report Type: 
  Country: None (occurrence: None)
  Receive Date: 20090606
  Receipt Date: 20090528
  Transmission Date: 20091009
  Serious: Yes (Hospitalization, Other)
  Sender: FDA-Public Use
  Company Number: PHBS2006ZA15541

PATIENT
  Sex: Male

DRUGS (19)
  1. SANDIMMUNE [Suspect]
     Indication: STEM CELL TRANSPLANT
     Dosage: UNK
     Route: 065
     Dates: start: 20030612, end: 20040201
  2. SANDIMMUNE [Suspect]
     Indication: GRAFT VERSUS HOST DISEASE
     Dosage: UNK
     Dates: start: 20040401, end: 20040501
  3. SANDIMMUNE [Suspect]
     Dates: start: 20050501
  4. SANDIMMUNE [Suspect]
     Dosage: UNK
     Dates: start: 20050703
  5. CORTISONE [Suspect]
     Indication: GRAFT VERSUS HOST DISEASE
     Dosage: UNK
     Dates: start: 20030601, end: 20040201
  6. CORTISONE [Suspect]
     Dosage: UNK
     Dates: start: 20040401, end: 20040501
  7. CELLCEPT [Concomitant]
     Indication: GRAFT VERSUS HOST DISEASE
     Dosage: UNK
     Dates: start: 20050501
  8. CELLCEPT [Concomitant]
     Dates: start: 20050713
  9. LOSEC [Concomitant]
     Dates: start: 20050806
  10. PROZAC [Concomitant]
     Dates: start: 20050817
  11. ZOPIMED [Concomitant]
     Dates: start: 20050630
  12. WARFARIN [Concomitant]
  13. SLOW-MAG [Concomitant]
  14. BEROCCA C [Concomitant]
  15. GASTROLYTE [Concomitant]
  16. PROBIOTICS (MICROORGANISMS W/PROBIOTIC ACTION) [Concomitant]
  17. XANOR [Concomitant]
  18. AUGMENTIN [Concomitant]
     Dates: start: 20060928
  19. PREDNISONE [Concomitant]

REACTIONS (26)
  - ARTHRALGIA [None]
  - ASPERGILLOSIS [None]
  - CHRONIC GRAFT VERSUS HOST DISEASE [None]
  - DISCOMFORT [None]
  - DYSGRAPHIA [None]
  - DYSPEPSIA [None]
  - FACIAL SPASM [None]
  - HIP ARTHROPLASTY [None]
  - HIP SURGERY [None]
  - LIVER FUNCTION TEST ABNORMAL [None]
  - LUNG ABSCESS [None]
  - MALAISE [None]
  - MOVEMENT DISORDER [None]
  - MUSCLE SPASMS [None]
  - MUSCULAR WEAKNESS [None]
  - MUSCULOSKELETAL DISCOMFORT [None]
  - OESOPHAGEAL SPASM [None]
  - OSTEONECROSIS [None]
  - PAIN [None]
  - SPEECH DISORDER [None]
  - STAPHYLOCOCCAL ABSCESS [None]
  - STREPTOCOCCAL ABSCESS [None]
  - SURGERY [None]
  - TRISMUS [None]
  - TUBERCULOSIS [None]
  - WEIGHT DECREASED [None]
